FAERS Safety Report 11310040 (Version 1)
Quarter: 2015Q3

REPORT INFORMATION
  Report Type: Spontaneous
  Country: ES (occurrence: ES)
  Receive Date: 20150724
  Receipt Date: 20150724
  Transmission Date: 20151125
  Serious: Yes (Other)
  Sender: FDA-Public Use
  Company Number: ES-REGENERON PHARMACEUTICALS, INC.-2015-11438

PATIENT

DRUGS (3)
  1. EYLEA [Suspect]
     Active Substance: AFLIBERCEPT
     Indication: RETINAL VEIN OCCLUSION
     Dosage: UNK
     Route: 031
     Dates: start: 20140430, end: 20140430
  2. EYLEA [Suspect]
     Active Substance: AFLIBERCEPT
     Indication: RETINAL VEIN THROMBOSIS
     Dosage: UNK
     Route: 031
     Dates: start: 20140813, end: 20140813
  3. EYLEA [Suspect]
     Active Substance: AFLIBERCEPT
     Dosage: UNK
     Route: 031
     Dates: start: 20150107, end: 20150107

REACTIONS (3)
  - Vitreous opacities [Unknown]
  - Cystoid macular oedema [Unknown]
  - Iridocyclitis [Recovered/Resolved with Sequelae]

NARRATIVE: CASE EVENT DATE: 20150109
